FAERS Safety Report 9217639 (Version 2)
Quarter: 2013Q2

REPORT INFORMATION
  Report Type: Spontaneous
  Country: US (occurrence: US)
  Receive Date: 20130408
  Receipt Date: 20130524
  Transmission Date: 20140414
  Serious: No
  Sender: FDA-Public Use
  Company Number: US-009507513-1304USA002486

PATIENT
  Sex: Female

DRUGS (3)
  1. INTRONA [Suspect]
     Indication: HEPATITIS C
     Dosage: UNK
     Route: 065
     Dates: start: 1999, end: 1999
  2. REBETOL [Suspect]
     Dosage: UNK
     Route: 048
  3. PRILOSEC [Concomitant]

REACTIONS (1)
  - Depression suicidal [Recovered/Resolved]
